FAERS Safety Report 9535544 (Version 1)
Quarter: 2013Q3

REPORT INFORMATION
  Report Type: Report from Study
  Country: JP (occurrence: JP)
  Receive Date: 20130919
  Receipt Date: 20130919
  Transmission Date: 20140515
  Serious: Yes (Other)
  Sender: FDA-Public Use
  Company Number: JP-ROCHE-1275726

PATIENT
  Sex: 0

DRUGS (6)
  1. CARVEDILOL [Suspect]
     Indication: PRODUCT USED FOR UNKNOWN INDICATION
     Route: 065
  2. BROMAZEPAM [Suspect]
     Indication: ANXIETY
     Route: 065
  3. CLONAZEPAM [Suspect]
     Indication: CONVULSION
     Route: 065
  4. GLIBENCLAMIDE [Suspect]
     Indication: PRODUCT USED FOR UNKNOWN INDICATION
     Route: 065
  5. METFORMIN [Suspect]
     Indication: PRODUCT USED FOR UNKNOWN INDICATION
     Route: 065
  6. IRINOTECAN [Suspect]
     Indication: NEOPLASM MALIGNANT
     Dosage: 1.5-H INTRAVENOUS INFUSION OF IRINOTECAN (150 MG/M2 EVERY 2 WEEKS), OR WEEKLY IRINOTECAN (100 MG/M2
     Route: 042

REACTIONS (2)
  - Neutropenia [Unknown]
  - Diarrhoea [Unknown]
